FAERS Safety Report 6746449-3 (Version None)
Quarter: 2010Q2

REPORT INFORMATION
  Report Type: 
  Country: None (occurrence: None)
  Receive Date: 20100528
  Receipt Date: 20100519
  Transmission Date: 20101027
  Serious: Yes (Death, Hospitalization, Other)
  Sender: FDA-Public Use
  Company Number: JP-ROCHE-704897

PATIENT
  Sex: Male
  Weight: 59 kg

DRUGS (3)
  1. AVASTIN [Suspect]
     Indication: LUNG CANCER METASTATIC
     Route: 041
     Dates: start: 20100126, end: 20100223
  2. CARBOPLATIN [Concomitant]
     Dosage: DOSAGE :UNCERTAIN
     Route: 041
     Dates: start: 20100126, end: 20100223
  3. PACLITAXEL [Concomitant]
     Dosage: DOSAGE: UNCERTAIN
     Route: 041
     Dates: start: 20100126, end: 20100223

REACTIONS (3)
  - DISEASE PROGRESSION [None]
  - HAEMOPTYSIS [None]
  - HAEMOTHORAX [None]
